FAERS Safety Report 5615928-4 (Version None)
Quarter: 2008Q1

REPORT INFORMATION
  Report Type: 
  Country: None (occurrence: None)
  Receive Date: 20080206
  Receipt Date: 20080128
  Transmission Date: 20080703
  Serious: Yes (Life-Threatening, Hospitalization)
  Sender: FDA-Public Use
  Company Number: ES-PFIZER INC-2008007966

PATIENT
  Age: 75 Year
  Sex: Male

DRUGS (5)
  1. CELEBREX [Suspect]
     Indication: GOUT
     Route: 048
     Dates: start: 20071022, end: 20071107
  2. ALLOPURINOL [Interacting]
     Indication: GOUT
     Dosage: DAILY DOSE:300MG
     Route: 048
     Dates: start: 20071022, end: 20071107
  3. COLCHIMAX [Interacting]
     Indication: GOUT
     Dosage: DAILY DOSE:3MG
     Route: 048
     Dates: start: 20071022, end: 20071107
  4. TROMALYT [Concomitant]
     Route: 048
  5. IRBESARTAN [Concomitant]
     Route: 048

REACTIONS (4)
  - DRUG INTERACTION [None]
  - HEPATOTOXICITY [None]
  - RENAL FAILURE ACUTE [None]
  - RHABDOMYOLYSIS [None]
